FAERS Safety Report 19578301 (Version 2)
Quarter: 2021Q3

REPORT INFORMATION
  Report Type: Report from Study
  Country: None (occurrence: AT)
  Receive Date: 20210720
  Receipt Date: 20210721
  Transmission Date: 20211014
  Serious: Yes (Hospitalization)
  Sender: FDA-Public Use
  Company Number: AT-ABBVIE-21K-009-3996178-00

PATIENT
  Sex: Female

DRUGS (2)
  1. DUODOPA [Suspect]
     Active Substance: CARBIDOPA\LEVODOPA
     Indication: PARKINSON^S DISEASE
     Dosage: 24 THERAPY: MD: 5,5ML, CR DAYTIME: 2,4ML, CR2 DAYTIME 2,8ML, CR NIGHTTIME: 1,5
     Route: 050
     Dates: start: 201507, end: 201507
  2. DUODOPA [Suspect]
     Active Substance: CARBIDOPA\LEVODOPA
     Dosage: 24 THERAPY: MD: 1,5ML, CR DAYTIME: 2,4ML, CR2 DAYTIME 2,8ML, CR NIGHTTIME: 1,5
     Route: 050
     Dates: start: 20150714

REACTIONS (4)
  - Intentional product misuse [Not Recovered/Not Resolved]
  - Confusional state [Unknown]
  - Aggression [Not Recovered/Not Resolved]
  - Hallucination [Not Recovered/Not Resolved]
